FAERS Safety Report 13668704 (Version 1)
Quarter: 2017Q2

REPORT INFORMATION
  Report Type: Spontaneous
  Country: US (occurrence: US)
  Receive Date: 20170620
  Receipt Date: 20170620
  Transmission Date: 20170830
  Serious: Yes (Disabling, Other)
  Sender: FDA-Public Use
  Company Number: None

PATIENT
  Age: 81 Year
  Sex: Female
  Weight: 56.3 kg

DRUGS (4)
  1. NEXIUM [Suspect]
     Active Substance: ESOMEPRAZOLE MAGNESIUM
     Indication: PRODUCT USED FOR UNKNOWN INDICATION
     Dosage: 140MG CAP 1XDAY-AM
     Route: 048
     Dates: start: 20050404, end: 20170331
  2. RANITIDINE TAB [Concomitant]
  3. LIQUID ALIVE MIN. + VITAMINS [Concomitant]
  4. IBUPROFEN. [Concomitant]
     Active Substance: IBUPROFEN

REACTIONS (9)
  - Withdrawal syndrome [None]
  - Headache [None]
  - Product quality issue [None]
  - Diarrhoea [None]
  - Pain [None]
  - Upper respiratory tract infection [None]
  - Eye disorder [None]
  - Constipation [None]
  - Productive cough [None]

NARRATIVE: CASE EVENT DATE: 20151111
